FAERS Safety Report 5003943-3 (Version None)
Quarter: 2006Q2

REPORT INFORMATION
  Report Type: 
  Country: None (occurrence: None)
  Receive Date: 20060517
  Receipt Date: 20060509
  Transmission Date: 20061013
  Serious: Yes (Other)
  Sender: FDA-Public Use
  Company Number: PHBS2006JP07043

PATIENT
  Age: 40 Year
  Sex: Male

DRUGS (3)
  1. TEGRETOL [Suspect]
     Dosage: 400 MG/DAY
     Route: 048
     Dates: start: 20060308
  2. DEPAS [Suspect]
     Dosage: 1 MG/DAY
     Route: 048
     Dates: start: 20060308
  3. ROHYPNOL [Suspect]
     Dosage: 1 MG/DAY
     Route: 048
     Dates: start: 20060308

REACTIONS (7)
  - ALANINE AMINOTRANSFERASE INCREASED [None]
  - ASPARTATE AMINOTRANSFERASE INCREASED [None]
  - BLOOD ALKALINE PHOSPHATASE INCREASED [None]
  - C-REACTIVE PROTEIN INCREASED [None]
  - HEPATIC FUNCTION ABNORMAL [None]
  - HEPATIC STEATOSIS [None]
  - PYREXIA [None]
